FAERS Safety Report 5373832-3 (Version None)
Quarter: 2007Q2

REPORT INFORMATION
  Report Type: 
  Country: None (occurrence: None)
  Receive Date: 20070628
  Receipt Date: 20070618
  Transmission Date: 20071010
  Serious: Yes (Other)
  Sender: FDA-Public Use
  Company Number: US-PFIZER INC-2007018352

PATIENT
  Sex: Female
  Weight: 101.2 kg

DRUGS (7)
  1. CHANTIX [Suspect]
     Indication: EX-SMOKER
     Route: 048
  2. ALL OTHER THERAPEUTIC PRODUCTS [Suspect]
     Indication: BACK DISORDER
     Route: 008
  3. SYNTHROID [Concomitant]
     Route: 048
  4. NEXIUM [Concomitant]
     Route: 048
  5. LIPITOR [Concomitant]
     Route: 048
  6. VICODIN [Concomitant]
     Route: 048
  7. ALL OTHER THERAPEUTIC PRODUCTS [Concomitant]

REACTIONS (9)
  - BLOOD PRESSURE INCREASED [None]
  - CRYING [None]
  - DEPRESSION [None]
  - HEADACHE [None]
  - INSOMNIA [None]
  - MOOD ALTERED [None]
  - NAUSEA [None]
  - THERAPEUTIC PROCEDURE [None]
  - UNEVALUABLE EVENT [None]
